FAERS Safety Report 21557455 (Version 1)
Quarter: 2022Q4

REPORT INFORMATION
  Report Type: Other
  Country: None (occurrence: FR)
  Receive Date: 20221105
  Receipt Date: 20221105
  Transmission Date: 20230113
  Serious: Yes (Other)
  Sender: FDA-Public Use
  Company Number: FR-MLV Pharma LLC-2134558

PATIENT
  Sex: Female

DRUGS (1)
  1. FLUOCINOLONE ACETONIDE [Suspect]
     Active Substance: FLUOCINOLONE ACETONIDE
     Indication: Cystoid macular oedema

REACTIONS (2)
  - Intraocular pressure increased [Recovered/Resolved]
  - Product use in unapproved indication [Unknown]
